FAERS Safety Report 15087392 (Version 3)
Quarter: 2019Q1

REPORT INFORMATION
  Report Type: Report from Study
  Country: None (occurrence: FR)
  Receive Date: 20180628
  Receipt Date: 20190218
  Transmission Date: 20190417
  Serious: Yes (Hospitalization)
  Sender: FDA-Public Use
  Company Number: FR-ABBVIE-18K-056-2402356-00

PATIENT
  Sex: Female

DRUGS (2)
  1. DUODOPA [Suspect]
     Active Substance: CARBIDOPA\LEVODOPA
     Indication: PARKINSON^S DISEASE
     Route: 050
     Dates: start: 20180426
  2. DUODOPA [Suspect]
     Active Substance: CARBIDOPA\LEVODOPA
     Dosage: CONTINUOUS FLOW RATE DURING THE DAY WAS CHANGED TO 5ML/H
     Route: 050

REACTIONS (3)
  - Freezing phenomenon [Unknown]
  - Fall [Unknown]
  - Limb injury [Unknown]

NARRATIVE: CASE EVENT DATE: 20180621
